FAERS Safety Report 13423822 (Version 5)
Quarter: 2017Q3

REPORT INFORMATION
  Report Type: Spontaneous
  Country: DK (occurrence: DK)
  Receive Date: 20170410
  Receipt Date: 20170906
  Transmission Date: 20171127
  Serious: Yes (Disabling)
  Sender: FDA-Public Use
  Company Number: DK-PFIZER INC-2017152621

PATIENT
  Sex: Male

DRUGS (15)
  1. LANZOPRAZOL [Concomitant]
     Active Substance: LANSOPRAZOLE
     Dosage: UNK
     Dates: start: 20150830
  2. MAREVAN [Concomitant]
     Active Substance: WARFARIN SODIUM
     Dosage: UNK
     Dates: start: 20150830
  3. KALEORID [Concomitant]
     Active Substance: POTASSIUM CHLORIDE
     Dosage: UNK
     Dates: start: 20150830
  4. ATORVASTATIN [Concomitant]
     Active Substance: ATORVASTATIN
     Dosage: UNK
     Dates: start: 20150830
  5. CORDARONE [Suspect]
     Active Substance: AMIODARONE HYDROCHLORIDE
     Dosage: 300 MG, UNK
     Route: 042
     Dates: start: 20150630, end: 20150630
  6. CORDARONE [Suspect]
     Active Substance: AMIODARONE HYDROCHLORIDE
     Indication: CARDIAC ABLATION
     Dosage: 1200 MG, UNK
     Route: 048
  7. CORDARONE [Suspect]
     Active Substance: AMIODARONE HYDROCHLORIDE
     Dosage: 300 MG, UNK
     Route: 042
     Dates: start: 20150708, end: 20150708
  8. PAMORELIN [Concomitant]
     Active Substance: TRIPTORELIN PAMOATE
     Dosage: UNK
     Dates: start: 20150830
  9. CORDARONE [Suspect]
     Active Substance: AMIODARONE HYDROCHLORIDE
     Indication: CARDIAC ABLATION
     Dosage: UNK
     Route: 042
     Dates: start: 2015
  10. FURIX RETARD [Concomitant]
     Active Substance: FUROSEMIDE
     Dosage: UNK
     Dates: start: 20150830
  11. CORDARONE [Suspect]
     Active Substance: AMIODARONE HYDROCHLORIDE
     Dosage: 200 MG, UNK
     Route: 048
     Dates: start: 20150822, end: 20151108
  12. CORDARONE [Suspect]
     Active Substance: AMIODARONE HYDROCHLORIDE
     Dosage: 300 MG, UNK
     Route: 042
     Dates: start: 20150705, end: 20150705
  13. UNIKALK FORTE [Concomitant]
     Dosage: UNK
     Dates: start: 20150830
  14. METOPROLOL SUCCINATE. [Concomitant]
     Active Substance: METOPROLOL SUCCINATE
     Dosage: 150 MG, UNK
     Dates: start: 2015
  15. PREDNISOLON [Concomitant]
     Active Substance: PREDNISOLONE
     Dosage: UNK
     Dates: start: 20150830

REACTIONS (10)
  - Balance disorder [Not Recovered/Not Resolved]
  - Quality of life decreased [Unknown]
  - Mental impairment [Unknown]
  - Skin discolouration [Unknown]
  - Fall [Unknown]
  - Dyspnoea [Recovering/Resolving]
  - Skin exfoliation [Unknown]
  - Dizziness [Unknown]
  - Arrhythmia [Unknown]
  - General physical health deterioration [Unknown]
